FAERS Safety Report 13296290 (Version 1)
Quarter: 2017Q1

REPORT INFORMATION
  Report Type: Spontaneous
  Country: US (occurrence: US)
  Receive Date: 20170304
  Receipt Date: 20170304
  Transmission Date: 20170428
  Serious: No
  Sender: FDA-Public Use
  Company Number: US-009507513-1702USA011441

PATIENT
  Age: 67 Year
  Sex: Female

DRUGS (3)
  1. NARDIL [Concomitant]
     Active Substance: PHENELZINE SULFATE
     Dosage: 75 MG, QD
     Dates: start: 1984
  2. LISINOPRIL. [Suspect]
     Active Substance: LISINOPRIL
     Indication: HYPERTENSION
     Route: 048
  3. NARDIL [Concomitant]
     Active Substance: PHENELZINE SULFATE
     Indication: DEPRESSION
     Dosage: 15 MG, QD

REACTIONS (2)
  - Adverse drug reaction [Unknown]
  - Cough [Unknown]
